FAERS Safety Report 12700734 (Version 2)
Quarter: 2016Q4

REPORT INFORMATION
  Report Type: Spontaneous
  Country: US (occurrence: US)
  Receive Date: 20160830
  Receipt Date: 20161004
  Transmission Date: 20170207
  Serious: Yes (Life-Threatening)
  Sender: FDA-Public Use
  Company Number: US-BAUSCH-BL-2016-020114

PATIENT
  Age: 74 Year
  Sex: Male
  Weight: 111.68 kg

DRUGS (11)
  1. PROVENGE [Suspect]
     Active Substance: SIPULEUCEL-T
     Route: 042
     Dates: start: 20160901, end: 20160901
  2. ALEVE [Concomitant]
     Active Substance: NAPROXEN SODIUM
     Indication: BACK PAIN
  3. GENTAMICIN. [Concomitant]
     Active Substance: GENTAMICIN
     Dosage: AS NEEDED
     Route: 030
     Dates: start: 20160714
  4. CEFTRIAXONE. [Concomitant]
     Active Substance: CEFTRIAXONE
     Indication: PRODUCT USED FOR UNKNOWN INDICATION
     Route: 030
     Dates: start: 20160808
  5. LUPRON [Concomitant]
     Active Substance: LEUPROLIDE ACETATE
     Indication: PROSTATE CANCER
     Dates: start: 201601
  6. CEFTRIAXONE. [Concomitant]
     Active Substance: CEFTRIAXONE
     Dosage: MIXED WITH 2.1 ML 1 PERCENT LIDO
     Route: 030
     Dates: start: 20160713
  7. TYLENOL [Concomitant]
     Active Substance: ACETAMINOPHEN
     Indication: BACK PAIN
  8. CEFTRIAXONE. [Concomitant]
     Active Substance: CEFTRIAXONE
     Dosage: MIXED WITH 2.1 ML 1 PERCENT LIDO
     Route: 030
     Dates: start: 20160714
  9. GENTAMICIN. [Concomitant]
     Active Substance: GENTAMICIN
     Indication: INFECTION
     Dosage: AS NEEDED
     Route: 030
     Dates: start: 20160805
  10. GENTAMICIN. [Concomitant]
     Active Substance: GENTAMICIN
     Dosage: AS NEEDED
     Route: 030
     Dates: start: 20160713
  11. PROVENGE [Suspect]
     Active Substance: SIPULEUCEL-T
     Indication: PROSTATE CANCER
     Route: 042
     Dates: start: 20160818, end: 20160818

REACTIONS (2)
  - Sepsis [Recovered/Resolved]
  - Device related infection [Recovered/Resolved]

NARRATIVE: CASE EVENT DATE: 201608
